FAERS Safety Report 10676583 (Version 3)
Quarter: 2015Q4

REPORT INFORMATION
  Report Type: Spontaneous
  Country: US (occurrence: US)
  Receive Date: 20141226
  Receipt Date: 20151103
  Transmission Date: 20160304
  Serious: Yes (Life-Threatening, Hospitalization, Disabling)
  Sender: FDA-Public Use
  Company Number: US-BAYER-2014-187934

PATIENT
  Age: 20 Year
  Sex: Female
  Weight: 58.5 kg

DRUGS (1)
  1. MIRENA [Suspect]
     Active Substance: LEVONORGESTREL
     Indication: CONTRACEPTION
     Dosage: 20 MCG/24HR, CONT
     Route: 015
     Dates: start: 20080630, end: 20100210

REACTIONS (7)
  - General physical health deterioration [Not Recovered/Not Resolved]
  - Device dislocation [Not Recovered/Not Resolved]
  - Pelvic pain [Not Recovered/Not Resolved]
  - Abdominal pain [Not Recovered/Not Resolved]
  - Injury [Not Recovered/Not Resolved]
  - Balance disorder [None]
  - Uterine perforation [Not Recovered/Not Resolved]

NARRATIVE: CASE EVENT DATE: 201001
